FAERS Safety Report 11564030 (Version 1)
Quarter: 2015Q3

REPORT INFORMATION
  Report Type: Spontaneous
  Country: US (occurrence: US)
  Receive Date: 20150916
  Receipt Date: 20150916
  Transmission Date: 20151125
  Serious: No
  Sender: FDA-Public Use
  Company Number: US-ELI_LILLY_AND_COMPANY-US200902006658

PATIENT
  Age: 58 Year
  Sex: Male

DRUGS (5)
  1. BONIVA [Concomitant]
     Active Substance: IBANDRONATE SODIUM
     Indication: OSTEOPOROSIS
     Dates: start: 200902
  2. TESTOSTERONE. [Concomitant]
     Active Substance: TESTOSTERONE
     Indication: OSTEOPOROSIS
     Dosage: UNK, MONTHLY (1/M)
     Dates: start: 200902
  3. CALCIUM [Concomitant]
     Active Substance: CALCIUM
     Dosage: 1200 MG, UNK
  4. FORTEO [Suspect]
     Active Substance: TERIPARATIDE
     Indication: OSTEOPOROSIS
     Dosage: UNK, UNK
     Dates: start: 200608, end: 200808
  5. FORTEO [Suspect]
     Active Substance: TERIPARATIDE
     Dates: start: 200902

REACTIONS (2)
  - Constipation [Not Recovered/Not Resolved]
  - Bone density decreased [Not Recovered/Not Resolved]

NARRATIVE: CASE EVENT DATE: 200902
